FAERS Safety Report 8317261-9 (Version None)
Quarter: 2012Q2

REPORT INFORMATION
  Report Type: 
  Country: None (occurrence: None)
  Receive Date: 20120427
  Receipt Date: 20120418
  Transmission Date: 20120825
  Serious: Yes (Life-Threatening)
  Sender: FDA-Public Use
  Company Number: FR-MILLENNIUM PHARMACEUTICALS, INC.-2010-05168

PATIENT

DRUGS (7)
  1. PREDNISONE TAB [Concomitant]
     Dosage: UNK
  2. EPREX [Concomitant]
     Dosage: UNK
     Dates: start: 20071224
  3. VELCADE [Suspect]
     Dosage: 1 MG/M2, UNK
     Route: 065
     Dates: start: 20100118, end: 20100322
  4. CYCLOPHOSPHAMIDE [Concomitant]
     Indication: MULTIPLE MYELOMA
     Dosage: 300 MG, UNK
     Route: 042
     Dates: start: 20091214, end: 20100104
  5. VELCADE [Suspect]
     Dosage: 0.7 MG/M2, UNK
     Route: 065
     Dates: start: 20100412, end: 20100830
  6. DEXAMETHASONE [Concomitant]
     Indication: MULTIPLE MYELOMA
     Dosage: 40 MG, UNK
     Route: 048
     Dates: start: 20071112, end: 20100104
  7. VELCADE [Suspect]
     Indication: MULTIPLE MYELOMA
     Dosage: 1.3 MG/M2, UNK
     Route: 065
     Dates: start: 20091214, end: 20100104

REACTIONS (1)
  - THROMBOCYTOPENIA [None]
